FAERS Safety Report 18673226 (Version 1)
Quarter: 2020Q4

REPORT INFORMATION
  Report Type: Other
  Country: GB (occurrence: GB)
  Receive Date: 20201229
  Receipt Date: 20201229
  Transmission Date: 20210114
  Serious: Yes (Other)
  Sender: FDA-Public Use
  Company Number: GB-LUPIN PHARMACEUTICALS INC.-2020-10858

PATIENT
  Age: 18 Year
  Sex: Female

DRUGS (3)
  1. SERTRALINE [Suspect]
     Active Substance: SERTRALINE HYDROCHLORIDE
     Indication: SEROTONIN SYNDROME
     Dosage: 25 MILLIGRAM, UNK
     Route: 048
  2. FLUOXETINE [Suspect]
     Active Substance: FLUOXETINE HYDROCHLORIDE
     Indication: SEROTONIN SYNDROME
     Dosage: 20 MILLIGRAM, UNK
     Route: 048
  3. PREGABALIN. [Concomitant]
     Active Substance: PREGABALIN
     Indication: PRODUCT USED FOR UNKNOWN INDICATION
     Dosage: UNK
     Route: 065

REACTIONS (7)
  - Malaise [Unknown]
  - Tic [Unknown]
  - Serotonin syndrome [Unknown]
  - Restlessness [Unknown]
  - Irritability [Unknown]
  - Tremor [Unknown]
  - Muscle twitching [Unknown]
